FAERS Safety Report 14215369 (Version 2)
Quarter: 2018Q1

REPORT INFORMATION
  Report Type: Spontaneous
  Country: US (occurrence: US)
  Receive Date: 20171122
  Receipt Date: 20180102
  Transmission Date: 20180508
  Serious: Yes (Hospitalization, Other)
  Sender: FDA-Public Use
  Company Number: US-RETROPHIN, INC.-2017RTN00121

PATIENT
  Age: 5 Year
  Sex: Female
  Weight: 12.3 kg

DRUGS (13)
  1. LEVETIRACETAM. [Concomitant]
     Active Substance: LEVETIRACETAM
     Dosage: 400 MG, 2X/DAY
     Route: 048
  2. MULTIVITAMIN WITH MINERALS [Concomitant]
     Active Substance: MINERALS\VITAMINS
     Dosage: 1 ML, 1X/DAY
     Route: 048
  3. CHOLECALCIFEROL [Concomitant]
     Active Substance: CHOLECALCIFEROL
     Dosage: 3000 IU, 1X/DAY
     Route: 048
  4. PYRIDOXINE [Concomitant]
     Active Substance: PYRIDOXINE
     Dosage: 25 MG, 1X/DAY FOR 3-5 DAYS THEN INCREASE TO 50 MG DAILY IF TOLERATED
     Route: 048
  5. MIDAZOLAM [Concomitant]
     Active Substance: MIDAZOLAM HYDROCHLORIDE
     Dosage: 3 MG, AS NEEDED FOR SEIZURES
     Route: 045
  6. FERROUS SULFATE. [Concomitant]
     Active Substance: FERROUS SULFATE
     Dosage: 25 MG, 1X/DAY EVERY MORNING
     Route: 048
  7. ACETAMINOPHEN. [Concomitant]
     Active Substance: ACETAMINOPHEN
     Dosage: 160 MG, EVERY 4 HOURS AS NEEDED FOR FEVER OR PAIN
  8. OMEPRAZOLE. [Concomitant]
     Active Substance: OMEPRAZOLE
     Dosage: 10 MG, 2X/DAY
     Route: 048
  9. CHOLBAM [Suspect]
     Active Substance: CHOLIC ACID
     Indication: CEREBROHEPATORENAL SYNDROME
     Dosage: 150 MG, 1X/DAY
     Route: 048
     Dates: start: 20170915
  10. PHYTONADIONE. [Concomitant]
     Active Substance: PHYTONADIONE
     Dosage: 5 MG, 1X/DAY
     Route: 048
  11. CANNABIS EXTRACT OIL [Concomitant]
     Dosage: 40 MG CBD AND 10 MG THCA TWICE DAILY
     Route: 048
  12. CHOLBAM [Suspect]
     Active Substance: CHOLIC ACID
     Indication: BLOOD BILIRUBIN INCREASED
  13. CITRIC ACID; POTASSIUM CITRATE [Concomitant]
     Dosage: 2.5 ML, 2X/DAY
     Route: 048

REACTIONS (12)
  - Hyperbilirubinaemia [Recovered/Resolved]
  - Apnoea [Recovered/Resolved]
  - Ammonia increased [Unknown]
  - Anaemia [Unknown]
  - Joint range of motion decreased [Unknown]
  - Portal hypertension [Unknown]
  - Asthenia [Unknown]
  - White blood cell count increased [Unknown]
  - Monocyte count increased [Unknown]
  - Neutrophil count increased [Unknown]
  - Epilepsy [Not Recovered/Not Resolved]
  - Gastric haemorrhage [Unknown]

NARRATIVE: CASE EVENT DATE: 2017
